FAERS Safety Report 9254664 (Version 1)
Quarter: 2013Q1

REPORT INFORMATION
  Report Type: Spontaneous
  Country: US (occurrence: None)
  Receive Date: 20121203
  Receipt Date: 20121203
  Transmission Date: 20140127
  Serious: Yes (Hospitalization, Disabling, Other)
  Sender: FDA-Public Use
  Company Number: 2011SP051913

PATIENT
  Age: 24 Year
  Sex: Female
  Weight: 74.8 kg

DRUGS (1)
  1. NUVARING [Suspect]
     Indication: CONTRACEPTION
     Dosage: UNK, VAGINAL
     Dates: start: 200412, end: 200810

REACTIONS (21)
  - Cerebrovascular accident [None]
  - Cerebral haemorrhage [None]
  - Superior sagittal sinus thrombosis [None]
  - Venous thrombosis [None]
  - Respiratory disorder [None]
  - Hypercoagulation [None]
  - Blood disorder [None]
  - Sinus headache [None]
  - Cervical dysplasia [None]
  - Papilloma viral infection [None]
  - Anxiety [None]
  - Sinusitis [None]
  - Ear infection [None]
  - Vulvovaginitis [None]
  - Depression [None]
  - Night sweats [None]
  - Insomnia [None]
  - Dizziness [None]
  - Vaginal discharge [None]
  - Dermatitis contact [None]
  - Cervical dysplasia [None]
